FAERS Safety Report 14367890 (Version 1)
Quarter: 2018Q1

REPORT INFORMATION
  Report Type: Spontaneous
  Country: US (occurrence: US)
  Receive Date: 20180109
  Receipt Date: 20180109
  Transmission Date: 20180509
  Serious: No
  Sender: FDA-Public Use
  Company Number: US-TEVA-727934ACC

PATIENT
  Sex: Female
  Weight: 51.76 kg

DRUGS (2)
  1. PIROXICAM. [Suspect]
     Active Substance: PIROXICAM
     Indication: ASTHENIA
  2. PIROXICAM. [Suspect]
     Active Substance: PIROXICAM
     Indication: PAIN
     Dates: end: 20161024

REACTIONS (2)
  - Erythema [Unknown]
  - Off label use [Unknown]
